FAERS Safety Report 18415707 (Version 2)
Quarter: 2020Q4

REPORT INFORMATION
  Report Type: Spontaneous
  Country: CA (occurrence: CA)
  Receive Date: 20201022
  Receipt Date: 20201118
  Transmission Date: 20210114
  Serious: Yes (Death, Hospitalization, Other)
  Sender: FDA-Public Use
  Company Number: CA-PFIZER INC-2020271843

PATIENT
  Age: 87 Year
  Sex: Female

DRUGS (2)
  1. FULVESTRANT. [Concomitant]
     Active Substance: FULVESTRANT
     Dosage: UNK
  2. IBRANCE [Suspect]
     Active Substance: PALBOCICLIB
     Indication: BREAST CANCER METASTATIC
     Dosage: 100 MG, CYCLIC (DAILY 21/28 DAYS/100MG X 21DYS WITH 7 DYS OFF)
     Route: 048
     Dates: end: 20200930

REACTIONS (6)
  - Haemoglobin decreased [Unknown]
  - Death [Fatal]
  - Dehydration [Unknown]
  - Acute kidney injury [Unknown]
  - Performance status decreased [Unknown]
  - Fall [Unknown]

NARRATIVE: CASE EVENT DATE: 20201016
